FAERS Safety Report 9859940 (Version 2)
Quarter: 2014Q2

REPORT INFORMATION
  Report Type: Report from Study
  Country: US (occurrence: US)
  Receive Date: 20140131
  Receipt Date: 20140402
  Transmission Date: 20141212
  Serious: Yes (Other)
  Sender: FDA-Public Use
  Company Number: US-ABBVIE-14P-163-1193368-00

PATIENT
  Age: 58 Year
  Sex: Female
  Weight: 95.34 kg

DRUGS (4)
  1. HUMIRA [Suspect]
     Indication: PSORIASIS
     Dates: start: 20140109, end: 20140109
  2. HUMIRA [Suspect]
     Dates: start: 20140117
  3. MEDICATION FOR DIABETES [Concomitant]
     Indication: PRODUCT USED FOR UNKNOWN INDICATION
  4. THYROID MEDICATION [Concomitant]
     Indication: PRODUCT USED FOR UNKNOWN INDICATION

REACTIONS (9)
  - Loss of consciousness [Recovered/Resolved]
  - Concussion [Recovered/Resolved]
  - Fall [Recovered/Resolved]
  - Fear of injection [Not Recovered/Not Resolved]
  - Head injury [Recovered/Resolved]
  - Injection site pain [Not Recovered/Not Resolved]
  - Headache [Recovered/Resolved]
  - Drug dose omission [Unknown]
  - Presyncope [Recovered/Resolved]
